FAERS Safety Report 8028459-1 (Version None)
Quarter: 2012Q1

REPORT INFORMATION
  Report Type: 
  Country: None (occurrence: None)
  Receive Date: 20120106
  Receipt Date: 20120104
  Transmission Date: 20120608
  Serious: Yes (Other)
  Sender: FDA-Public Use
  Company Number: MY-ABBOTT-12P-101-0889189-00

PATIENT
  Sex: Female
  Weight: 55.7 kg

DRUGS (7)
  1. LEFLUNOMIDE [Concomitant]
     Indication: RHEUMATOID ARTHRITIS
     Route: 048
     Dates: start: 20110913, end: 20120103
  2. CACO3 [Concomitant]
     Indication: OSTEOPOROSIS PROPHYLAXIS
     Route: 048
     Dates: start: 20100310
  3. PERINDOPRIL [Concomitant]
     Indication: HYPERTENSION
     Route: 048
     Dates: start: 20020101
  4. CALCITRIOL [Concomitant]
     Indication: OSTEOPOROSIS PROPHYLAXIS
     Dosage: 0.25 UG BD
     Route: 048
     Dates: start: 20100310
  5. HUMIRA [Suspect]
     Indication: PRODUCT USED FOR UNKNOWN INDICATION
     Dates: start: 20111209
  6. FELODIPINE [Concomitant]
     Indication: HYPERTENSION
     Route: 048
     Dates: start: 20111206
  7. CELECOXIB [Concomitant]
     Indication: ANALGESIC THERAPY
     Dosage: 200MG P/N
     Route: 048
     Dates: start: 20080101

REACTIONS (7)
  - RASH [None]
  - DECREASED APPETITE [None]
  - ARTHRALGIA [None]
  - PNEUMONIA [None]
  - PYREXIA [None]
  - OROPHARYNGEAL PAIN [None]
  - COUGH [None]
